FAERS Safety Report 25148559 (Version 1)
Quarter: 2025Q2

REPORT INFORMATION
  Report Type: Report from Study
  Country: AE (occurrence: AE)
  Receive Date: 20250402
  Receipt Date: 20250402
  Transmission Date: 20250717
  Serious: Yes (Other)
  Sender: ROCHE
  Company Number: AE-ROCHE-10000241427

PATIENT
  Age: 57 Year
  Sex: Female

DRUGS (2)
  1. KADCYLA [Suspect]
     Active Substance: ADO-TRASTUZUMAB EMTANSINE
     Indication: Breast cancer
     Route: 065
  2. LETROZOLE [Concomitant]
     Active Substance: LETROZOLE

REACTIONS (5)
  - Breast cancer [Unknown]
  - Fatigue [Unknown]
  - Asthenia [Unknown]
  - Back pain [Unknown]
  - Thinking abnormal [Unknown]
